FAERS Safety Report 7916477-0 (Version None)
Quarter: 2011Q4

REPORT INFORMATION
  Report Type: 
  Country: None (occurrence: None)
  Receive Date: 20111114
  Receipt Date: 20111027
  Transmission Date: 20120403
  Serious: Yes (Death, Hospitalization)
  Sender: FDA-Public Use
  Company Number: 20100004444

PATIENT
  Age: 53 Year
  Sex: Female
  Weight: 84 kg

DRUGS (18)
  1. AVASTIN [Suspect]
  2. ERLOTINIB HYDROCHLORIDE [Suspect]
     Indication: NON-SMALL CELL LUNG CANCER
     Dosage: 25 MG, UIDIQD, ORAL, 50 MG, /D, ORAL, ORAL
     Route: 048
     Dates: start: 20080723
  3. ERLOTINIB HYDROCHLORIDE [Suspect]
     Indication: NON-SMALL CELL LUNG CANCER
     Dosage: 25 MG, UIDIQD, ORAL, 50 MG, /D, ORAL, ORAL
     Route: 048
     Dates: end: 20110923
  4. ERLOTINIB HYDROCHLORIDE [Suspect]
     Indication: NON-SMALL CELL LUNG CANCER
     Dosage: 25 MG, UIDIQD, ORAL, 50 MG, /D, ORAL, ORAL
     Route: 048
     Dates: start: 20110418, end: 20110425
  5. MINOCYCLINE HCL [Concomitant]
  6. LISINOPRIL [Concomitant]
  7. AVASTIN [Suspect]
     Indication: NON-SMALL CELL LUNG CANCER
     Dosage: 15 MG/KG 1 IN 21 DAYS, Q3W, IV NOS
     Route: 042
     Dates: start: 20080723, end: 20091224
  8. AVASTIN [Suspect]
     Indication: NON-SMALL CELL LUNG CANCER
     Dosage: 15 MG/KG 1 IN 21 DAYS, Q3W, IV NOS
     Route: 042
     Dates: start: 20090616, end: 20110418
  9. FENTANYL [Concomitant]
  10. PHENERGAN HCL [Concomitant]
  11. #1.4 LIFE TRANSFER FACTOR (TRANSFER FACTOR) [Concomitant]
  12. ZOFRAN [Concomitant]
  13. LEVAQUIN [Concomitant]
  14. THERA PLUS VITAMINS (MULTIVITAMINS WITH MINERALS) [Concomitant]
  15. CIPRO [Concomitant]
  16. ERLOTINIB HYDROCHLORIDE [Suspect]
  17. LOVENOX [Concomitant]
  18. LORTAB [Concomitant]

REACTIONS (28)
  - GASTROOESOPHAGEAL REFLUX DISEASE [None]
  - BRONCHITIS VIRAL [None]
  - DERMATITIS ACNEIFORM [None]
  - CANDIDIASIS [None]
  - ELECTROCARDIOGRAM CHANGE [None]
  - SYNCOPE [None]
  - DEHYDRATION [None]
  - OXYGEN SATURATION DECREASED [None]
  - PLATELET COUNT DECREASED [None]
  - PLEURAL EFFUSION [None]
  - PERICARDIAL EFFUSION [None]
  - WHITE BLOOD CELL COUNT DECREASED [None]
  - VOMITING [None]
  - DYSPNOEA [None]
  - PERIPHERAL COLDNESS [None]
  - PULMONARY HYPERTENSION [None]
  - ASTHENIA [None]
  - TACHYCARDIA [None]
  - ASPIRATION [None]
  - INCORRECT DOSE ADMINISTERED [None]
  - DIASTOLIC DYSFUNCTION [None]
  - TRICUSPID VALVE INCOMPETENCE [None]
  - CHEST PAIN [None]
  - CHEST DISCOMFORT [None]
  - FUNGAL SEPSIS [None]
  - PANIC ATTACK [None]
  - BLOOD PRESSURE DECREASED [None]
  - CIRCULATORY COLLAPSE [None]
